FAERS Safety Report 25209323 (Version 1)
Quarter: 2025Q2

REPORT INFORMATION
  Report Type: Spontaneous
  Country: US (occurrence: None)
  Receive Date: 20250417
  Receipt Date: 20250417
  Transmission Date: 20250716
  Serious: Yes (Disabling)
  Sender: FDA-CTU
  Company Number: None

PATIENT
  Age: 25 Year
  Sex: Female
  Weight: 105.75 kg

DRUGS (13)
  1. TESTOSTERONE [Suspect]
     Active Substance: TESTOSTERONE
     Indication: Transgender hormonal therapy
     Dosage: 300 GEL PACKS DAILY TOPICAL
     Route: 061
     Dates: start: 20190405, end: 20250315
  2. TESTOSTERONE [Concomitant]
     Active Substance: TESTOSTERONE
  3. LEVOTHYROXINE [Concomitant]
     Active Substance: LEVOTHYROXINE
  4. LAMOTRIGINE [Concomitant]
     Active Substance: LAMOTRIGINE
  5. LITHIUM [Concomitant]
     Active Substance: LITHIUM
  6. Hydorxizine [Concomitant]
  7. ATORVASTATIN [Concomitant]
     Active Substance: ATORVASTATIN
  8. ATOMOXETINE [Concomitant]
     Active Substance: ATOMOXETINE
  9. MONTELUKAST [Concomitant]
     Active Substance: MONTELUKAST
  10. Fluticasone-salmeterol inhaler [Concomitant]
  11. SPIRIVA [Concomitant]
     Active Substance: TIOTROPIUM BROMIDE MONOHYDRATE
  12. 3% saline nebulizer treatment [Concomitant]
  13. CITRUCEL [Concomitant]
     Active Substance: METHYLCELLULOSE (4000 CPS)

REACTIONS (1)
  - Anaemia [None]

NARRATIVE: CASE EVENT DATE: 20230101
